FAERS Safety Report 6581188-3 (Version None)
Quarter: 2010Q1

REPORT INFORMATION
  Report Type: 
  Country: None (occurrence: None)
  Receive Date: 20100203
  Receipt Date: 20100118
  Transmission Date: 20100710
  Serious: Yes (Death)
  Sender: FDA-Public Use
  Company Number: B0627678A

PATIENT
  Age: 53 Year
  Sex: Female

DRUGS (8)
  1. LITHIUM CARBONATE [Suspect]
     Dosage: ORAL
     Route: 048
  2. ALBUTEROL SULFATE [Suspect]
     Dosage: ORAL
     Route: 048
  3. ACETAMINOPHEN [Suspect]
     Dosage: ORAL
     Route: 048
  4. OXYBUTYNIN [Suspect]
     Dosage: ORAL
     Route: 048
  5. ACE INHIBITOR (FORMULATION UNKNOWN) (ACE INHIBITOR) [Suspect]
     Dosage: ORAL
     Route: 048
  6. CLEMASTINE FUMARATE [Suspect]
     Dosage: ORAL
     Route: 048
  7. STEROID (FORMULATION UNKNOWN) (STEROID) [Suspect]
  8. VALPROIC ACID [Suspect]
     Dosage: ORAL
     Route: 048

REACTIONS (1)
  - ADVERSE DRUG REACTION [None]
